FAERS Safety Report 12218582 (Version 1)
Quarter: 2016Q1

REPORT INFORMATION
  Report Type: Spontaneous
  Country: BE (occurrence: BE)
  Receive Date: 20160329
  Receipt Date: 20160329
  Transmission Date: 20160526
  Serious: Yes (Other)
  Sender: FDA-Public Use
  Company Number: BE-PFIZER INC-2016176024

PATIENT
  Age: 45 Year
  Sex: Female

DRUGS (2)
  1. FASTUM [Concomitant]
     Active Substance: KETOPROFEN
  2. FELDENE [Suspect]
     Active Substance: PIROXICAM
     Dosage: 40 MG, 1X/DAY
     Route: 048

REACTIONS (9)
  - Cardiovascular disorder [Unknown]
  - Faeces discoloured [Unknown]
  - Gastrointestinal haemorrhage [Unknown]
  - Cerebrovascular accident [Unknown]
  - Coma [Unknown]
  - Hypotension [Unknown]
  - Malaise [Unknown]
  - Prescribed overdose [Unknown]
  - Dysstasia [Unknown]
